FAERS Safety Report 24322228 (Version 1)
Quarter: 2024Q3

REPORT INFORMATION
  Report Type: Spontaneous
  Country: US (occurrence: US)
  Receive Date: 20240916
  Receipt Date: 20240916
  Transmission Date: 20241016
  Serious: Yes (Other)
  Sender: AMGEN
  Company Number: US-AMGEN-USASP2024178007

PATIENT
  Age: 32 Year
  Sex: Male

DRUGS (1)
  1. PREDNISONE [Suspect]
     Active Substance: PREDNISONE
     Indication: Viral pericarditis
     Dosage: 40 MILLIGRAM FOR 2 WEEKS
     Route: 048

REACTIONS (6)
  - Cardiac pseudoaneurysm [Recovered/Resolved]
  - Cardiac perforation [Recovered/Resolved]
  - Stress cardiomyopathy [Recovered/Resolved]
  - Myocardial necrosis [Unknown]
  - Drug effective for unapproved indication [Unknown]
  - Off label use [Unknown]
